FAERS Safety Report 13910494 (Version 1)
Quarter: 2017Q3

REPORT INFORMATION
  Report Type: Spontaneous
  Country: US (occurrence: US)
  Receive Date: 20170828
  Receipt Date: 20170828
  Transmission Date: 20171127
  Serious: Yes (Other)
  Sender: FDA-Public Use
  Company Number: US-ALLERGAN-1715911US

PATIENT
  Sex: Male

DRUGS (1)
  1. FETZIMA [Suspect]
     Active Substance: LEVOMILNACIPRAN HYDROCHLORIDE
     Indication: MAJOR DEPRESSION
     Dosage: 80 MG, QD

REACTIONS (6)
  - Decreased appetite [Unknown]
  - Nausea [Unknown]
  - Agitation [Unknown]
  - Constipation [Unknown]
  - Depression [Unknown]
  - Insomnia [Unknown]
